FAERS Safety Report 25388329 (Version 1)
Quarter: 2025Q2

REPORT INFORMATION
  Report Type: Spontaneous
  Country: US (occurrence: US)
  Receive Date: 20250603
  Receipt Date: 20250603
  Transmission Date: 20250716
  Serious: No
  Sender: ELI LILLY AND COMPANY
  Company Number: US-ELI_LILLY_AND_COMPANY-US202505025944

PATIENT
  Age: 78 Year
  Sex: Female

DRUGS (12)
  1. MOUNJARO [Suspect]
     Active Substance: TIRZEPATIDE
     Indication: Cardiac disorder
     Dosage: 5 MG, WEEKLY (1/W)
     Route: 058
     Dates: start: 20250521
  2. MOUNJARO [Suspect]
     Active Substance: TIRZEPATIDE
     Indication: Cardiac disorder
     Dosage: 5 MG, WEEKLY (1/W)
     Route: 058
     Dates: start: 20250521
  3. MOUNJARO [Suspect]
     Active Substance: TIRZEPATIDE
     Indication: Cardiac disorder
     Dosage: 5 MG, WEEKLY (1/W)
     Route: 058
     Dates: start: 20250521
  4. MOUNJARO [Suspect]
     Active Substance: TIRZEPATIDE
     Indication: Cardiac disorder
     Dosage: 5 MG, WEEKLY (1/W)
     Route: 058
     Dates: start: 20250521
  5. MOUNJARO [Suspect]
     Active Substance: TIRZEPATIDE
     Indication: Spinal disorder
  6. MOUNJARO [Suspect]
     Active Substance: TIRZEPATIDE
     Indication: Spinal disorder
  7. MOUNJARO [Suspect]
     Active Substance: TIRZEPATIDE
     Indication: Spinal disorder
  8. MOUNJARO [Suspect]
     Active Substance: TIRZEPATIDE
     Indication: Spinal disorder
  9. MOUNJARO [Suspect]
     Active Substance: TIRZEPATIDE
     Indication: Weight control
  10. MOUNJARO [Suspect]
     Active Substance: TIRZEPATIDE
     Indication: Weight control
  11. MOUNJARO [Suspect]
     Active Substance: TIRZEPATIDE
     Indication: Weight control
  12. MOUNJARO [Suspect]
     Active Substance: TIRZEPATIDE
     Indication: Weight control

REACTIONS (1)
  - Extra dose administered [Unknown]

NARRATIVE: CASE EVENT DATE: 20250528
